FAERS Safety Report 16207253 (Version 3)
Quarter: 2019Q3

REPORT INFORMATION
  Report Type: Spontaneous
  Country: US (occurrence: US)
  Receive Date: 20190417
  Receipt Date: 20190729
  Transmission Date: 20191004
  Serious: No
  Sender: FDA-Public Use
  Company Number: US-ALNYLAM PHARMACEUTICALS, INC.-ALN-2019-000167

PATIENT
  Sex: Female

DRUGS (2)
  1. ONPATTRO [Suspect]
     Active Substance: PATISIRAN SODIUM
     Indication: HEREDITARY NEUROPATHIC AMYLOIDOSIS
     Dosage: UNK, Q3W
     Route: 042
     Dates: start: 20170322
  2. PEPCID [Concomitant]
     Active Substance: FAMOTIDINE
     Route: 042

REACTIONS (20)
  - Erythema [Unknown]
  - Vision blurred [Unknown]
  - Air embolism [Unknown]
  - Infusion related reaction [Unknown]
  - Swelling face [Unknown]
  - Nausea [Unknown]
  - Dizziness [Unknown]
  - Insomnia [Recovered/Resolved]
  - Extravasation [Unknown]
  - Flushing [Unknown]
  - Pain [Unknown]
  - No adverse event [Unknown]
  - Product administration error [Recovered/Resolved]
  - Incorrect product administration duration [Unknown]
  - Intercepted product administration error [Recovered/Resolved]
  - Product preparation issue [Unknown]
  - Incorrect dose administered [Unknown]
  - Administration site pain [Not Recovered/Not Resolved]
  - Administration site coldness [Recovered/Resolved]
  - Incorrect product administration duration [Recovered/Resolved]
